FAERS Safety Report 16594350 (Version 3)
Quarter: 2019Q3

REPORT INFORMATION
  Report Type: Spontaneous
  Country: US (occurrence: US)
  Receive Date: 20190718
  Receipt Date: 20190809
  Transmission Date: 20191004
  Serious: No
  Sender: FDA-Public Use
  Company Number: US-TEVA-2019-US-1079106

PATIENT
  Sex: Female

DRUGS (5)
  1. PROVIGIL [Suspect]
     Active Substance: MODAFINIL
     Indication: SOMNOLENCE
  2. MODAFINIL TEVA [Suspect]
     Active Substance: MODAFINIL
     Indication: SHIFT WORK DISORDER
     Route: 065
  3. PROVIGIL [Suspect]
     Active Substance: MODAFINIL
     Indication: FATIGUE
  4. PROVIGIL [Suspect]
     Active Substance: MODAFINIL
     Indication: SHIFT WORK DISORDER
     Dosage: 100MG FOR OVER 3 YEARS, 1 AND HALF TABLET/DAY
     Route: 065
     Dates: start: 201812
  5. MODAFINIL TEVA [Suspect]
     Active Substance: MODAFINIL
     Indication: FATIGUE

REACTIONS (10)
  - Anxiety [Unknown]
  - Anger [Unknown]
  - Tremor [Unknown]
  - Quality of life decreased [Unknown]
  - Headache [Unknown]
  - Vision blurred [Unknown]
  - Product substitution issue [Unknown]
  - Drug ineffective [Unknown]
  - Dissociation [Unknown]
  - Blepharospasm [Unknown]
